FAERS Safety Report 10250079 (Version 1)
Quarter: 2014Q2

REPORT INFORMATION
  Report Type: Spontaneous
  Country: US (occurrence: US)
  Receive Date: 20140620
  Receipt Date: 20140620
  Transmission Date: 20141212
  Serious: No
  Sender: FDA-Public Use
  Company Number: US-BRISTOL-MYERS SQUIBB COMPANY-20640728

PATIENT
  Age: 77 Year
  Sex: Female
  Weight: 70.29 kg

DRUGS (3)
  1. ELIQUIS [Suspect]
     Dates: start: 20140306
  2. MULTIVITAMIN [Concomitant]
  3. LEVOTHYROXINE [Concomitant]

REACTIONS (1)
  - Dizziness [Recovered/Resolved]
